FAERS Safety Report 25209860 (Version 1)
Quarter: 2025Q2

REPORT INFORMATION
  Report Type: Spontaneous
  Country: US (occurrence: US)
  Receive Date: 20250417
  Receipt Date: 20250417
  Transmission Date: 20250716
  Serious: No
  Sender: IPSEN
  Company Number: US-IPSEN Group, Research and Development-2025-08699

PATIENT
  Sex: Female

DRUGS (2)
  1. SOMATULINE DEPOT [Suspect]
     Active Substance: LANREOTIDE ACETATE
     Indication: Product used for unknown indication
     Dosage: UNDER THE SKIN
     Route: 058
     Dates: start: 20240304
  2. BENADRYL ITCH STOPPING CREAM [Concomitant]

REACTIONS (2)
  - Alopecia [Not Recovered/Not Resolved]
  - Cough [Not Recovered/Not Resolved]
